FAERS Safety Report 12885694 (Version 3)
Quarter: 2016Q4

REPORT INFORMATION
  Report Type: Spontaneous
  Country: US (occurrence: US)
  Receive Date: 20161026
  Receipt Date: 20161115
  Transmission Date: 20170207
  Serious: No
  Sender: FDA-Public Use
  Company Number: US-B.I. PHARMACEUTICALS,INC./RIDGEFIELD-2016-BI-070053

PATIENT
  Age: 79 Year
  Sex: Male

DRUGS (3)
  1. CARVEDILOL- HYDROCHLOROTHIAZIDE [Concomitant]
     Indication: HYPERTENSION
     Dosage: 2 TABLETS DAILY;  FORM STRENGTH: 40MG/12.5MG; DAILY DOSE: 80MG/25MG
     Route: 048
     Dates: start: 201510
  2. CATAPRES-TTS [Suspect]
     Active Substance: CLONIDINE
     Indication: HYPERTENSION
     Dosage: 1 PATCH EVERY 7 DAYS;  FORM STRENGTH: 5.0 MG (0.2 MG / DAY); FORMULATION: PATCH
     Route: 061
     Dates: start: 20161021
  3. CLONIDINE. [Concomitant]
     Active Substance: CLONIDINE
     Indication: HYPERTENSION
     Dosage: 1 TABLET DAILY;  FORM STRENGTH: 0.1MG;
     Route: 048
     Dates: start: 201603

REACTIONS (1)
  - Drug ineffective [Not Recovered/Not Resolved]

NARRATIVE: CASE EVENT DATE: 20161021
